FAERS Safety Report 13068558 (Version 1)
Quarter: 2016Q4

REPORT INFORMATION
  Report Type: Spontaneous
  Country: US (occurrence: US)
  Receive Date: 20161227
  Receipt Date: 20161227
  Transmission Date: 20170207
  Serious: Yes (Other)
  Sender: FDA-Public Use
  Company Number: None

PATIENT
  Age: 48 Year
  Sex: Female
  Weight: 62.55 kg

DRUGS (4)
  1. ARAVE [Concomitant]
  2. ENTOCOLAC [Concomitant]
  3. PLAQUENIL [Concomitant]
     Active Substance: HYDROXYCHLOROQUINE SULFATE
  4. XELJANZ [Suspect]
     Active Substance: TOFACITINIB CITRATE
     Indication: ARTHRITIS
     Dosage: ?          OTHER ROUTE:SWOLLOWLED?
     Route: 048
     Dates: end: 20161214

REACTIONS (1)
  - Weight increased [None]

NARRATIVE: CASE EVENT DATE: 20161214
